FAERS Safety Report 4792987-2 (Version None)
Quarter: 2005Q4

REPORT INFORMATION
  Report Type: 
  Country: None (occurrence: None)
  Receive Date: 20051010
  Receipt Date: 20050930
  Transmission Date: 20060501
  Serious: Yes (Hospitalization)
  Sender: FDA-Public Use
  Company Number: FR-MERCK-0510FRA00003

PATIENT
  Age: 54 Year
  Sex: Female
  Weight: 50 kg

DRUGS (6)
  1. FOSAMAX [Suspect]
     Route: 048
     Dates: start: 20050608, end: 20050801
  2. PANTOPRAZOLE SODIUM [Suspect]
     Route: 048
     Dates: start: 20050101, end: 20050901
  3. PREDNISONE [Concomitant]
     Route: 048
  4. CALCIUM CARBONATE AND CHOLECALCIFEROL [Concomitant]
     Route: 048
  5. BUDESONIDE AND FORMOTEROL FUMARATE [Concomitant]
     Route: 065
  6. METHYLPREDNISOLONE SODIUM SUCCINATE [Concomitant]
     Indication: RHEUMATOID ARTHRITIS
     Route: 051
     Dates: start: 20050501

REACTIONS (2)
  - HEPATIC NECROSIS [None]
  - HEPATITIS [None]
